FAERS Safety Report 5110378-1 (Version None)
Quarter: 2006Q3

REPORT INFORMATION
  Report Type: 
  Country: None (occurrence: None)
  Receive Date: 20060914
  Receipt Date: 20060906
  Transmission Date: 20061208
  Serious: Yes (Hospitalization, Other)
  Sender: FDA-Public Use
  Company Number: 200610265BBE

PATIENT
  Age: 11 Year
  Sex: Male

DRUGS (3)
  1. PLASBUMIN-25 [Suspect]
     Indication: ACUTE LEUKAEMIA
     Dosage: 100 ML, TOTAL DAILY, INTRAVENOUS
     Route: 042
     Dates: start: 20060212
  2. PLASBUMIN-25 [Suspect]
     Indication: LEUKAEMIA RECURRENT
     Dosage: 100 ML, TOTAL DAILY, INTRAVENOUS
     Route: 042
     Dates: start: 20060212
  3. CHEMOTHERAPY [Concomitant]

REACTIONS (5)
  - CHILLS [None]
  - DYSPNOEA [None]
  - HYPERTENSION [None]
  - HYPERVOLAEMIA [None]
  - RESPIRATORY RATE INCREASED [None]
